FAERS Safety Report 9800651 (Version 1)
Quarter: 2014Q1

REPORT INFORMATION
  Report Type: Report from Study
  Country: US (occurrence: US)
  Receive Date: 20140107
  Receipt Date: 20140107
  Transmission Date: 20141002
  Serious: Yes (Death)
  Sender: FDA-Public Use
  Company Number: US-ROCHE-1330035

PATIENT
  Age: 60 Year
  Sex: Female

DRUGS (12)
  1. AVASTIN [Suspect]
     Indication: COLON CANCER
     Route: 042
     Dates: start: 20110126
  2. XELODA [Suspect]
     Indication: COLON CANCER
     Route: 065
  3. IRINOTECAN HYDROCHLORIDE [Concomitant]
     Route: 041
  4. ELOXATIN [Concomitant]
  5. LEUCOVORIN [Concomitant]
     Route: 042
  6. 5-FU [Concomitant]
     Route: 040
  7. 5-FU [Concomitant]
     Dosage: CIV OVER 46 HOURS
     Route: 041
  8. HEPARIN SODIUM [Concomitant]
     Dosage: CIV
     Route: 042
  9. ATROPINE SULFATE [Concomitant]
     Route: 040
  10. DEXAMETHASONE SODIUM PHOSPHATE [Concomitant]
     Dosage: AS DIRECTED
     Route: 041
  11. PALONOSETRON HYDROCHLORIDE [Concomitant]
     Dosage: AS DIRECTED
     Route: 041
  12. GRANISETRON HYDROCHLORIDE [Concomitant]
     Route: 042

REACTIONS (1)
  - Death [Fatal]
